FAERS Safety Report 23330105 (Version 5)
Quarter: 2024Q3

REPORT INFORMATION
  Report Type: Spontaneous
  Country: US (occurrence: US)
  Receive Date: 20231222
  Receipt Date: 20240725
  Transmission Date: 20241017
  Serious: No
  Sender: SANOFI AVENTIS
  Company Number: US-SA-SAC20231214000898

PATIENT
  Age: 52 Year
  Sex: Female
  Weight: 73 kg

DRUGS (9)
  1. DUPIXENT [Suspect]
     Active Substance: DUPILUMAB
     Indication: Dermatitis atopic
     Dosage: 300 MG, QOW
     Route: 058
  2. DUPIXENT [Suspect]
     Active Substance: DUPILUMAB
     Dosage: 300 MG, QOW
     Route: 058
  3. VITAMIN B12 [Concomitant]
     Active Substance: CYANOCOBALAMIN
  4. ESTRADIOL [Concomitant]
     Active Substance: ESTRADIOL
  5. CLOBETASOL [Concomitant]
     Active Substance: CLOBETASOL
  6. QVAR REDIHALER [Concomitant]
     Active Substance: BECLOMETHASONE DIPROPIONATE
  7. ALBUTEROL SULFATE [Concomitant]
     Active Substance: ALBUTEROL SULFATE
  8. EPIPEN [Concomitant]
     Active Substance: EPINEPHRINE
  9. VITAMINS [Concomitant]
     Active Substance: VITAMINS

REACTIONS (13)
  - Lacrimation increased [Unknown]
  - Illness [Unknown]
  - Photophobia [Recovering/Resolving]
  - Eye swelling [Unknown]
  - Eyelids pruritus [Recovering/Resolving]
  - Condition aggravated [Recovering/Resolving]
  - Erythema of eyelid [Recovering/Resolving]
  - Condition aggravated [Recovering/Resolving]
  - Swelling of eyelid [Recovering/Resolving]
  - Condition aggravated [Recovering/Resolving]
  - Dry eye [Unknown]
  - Conjunctivitis [Unknown]
  - Eye irritation [Unknown]
